FAERS Safety Report 5391962-7 (Version None)
Quarter: 2007Q3

REPORT INFORMATION
  Report Type: 
  Country: None (occurrence: None)
  Receive Date: 20070720
  Receipt Date: 20070713
  Transmission Date: 20080115
  Serious: Yes (Other)
  Sender: FDA-Public Use
  Company Number: PHBS2007JP11393

PATIENT
  Age: 88 Year
  Sex: Female

DRUGS (1)
  1. VOLTAREN [Suspect]
     Indication: HERPES ZOSTER
     Dosage: 75 MG/DAY
     Route: 048

REACTIONS (2)
  - HYPERTHYROIDISM [None]
  - TRI-IODOTHYRONINE INCREASED [None]
